FAERS Safety Report 6557913-4 (Version None)
Quarter: 2010Q1

REPORT INFORMATION
  Report Type: 
  Country: None (occurrence: None)
  Receive Date: 20100125
  Receipt Date: 20100105
  Transmission Date: 20100710
  Serious: No
  Sender: FDA-Public Use
  Company Number: 2010-00008

PATIENT
  Sex: Female

DRUGS (2)
  1. COLD REMEDY RAPIDMELTS WITH VITAMIN C [Suspect]
     Dosage: Q 3 HRS FOR 1WK/10 DAYS
     Dates: start: 20091203
  2. OMEPRAZOLE [Concomitant]

REACTIONS (1)
  - AGEUSIA [None]
